FAERS Safety Report 6084133-2 (Version None)
Quarter: 2009Q1

REPORT INFORMATION
  Report Type: 
  Country: None (occurrence: None)
  Receive Date: 20090219
  Receipt Date: 20090209
  Transmission Date: 20090719
  Serious: Yes (Life-Threatening, Hospitalization, Disabling)
  Sender: FDA-Public Use
  Company Number: FR-AVENTIS-200910432FR

PATIENT
  Age: 47 Year
  Sex: Female

DRUGS (11)
  1. TAXOTERE [Suspect]
     Route: 042
     Dates: start: 20080619, end: 20081002
  2. TAXOTERE [Suspect]
     Route: 042
     Dates: start: 20080619, end: 20081002
  3. AVASTIN [Suspect]
     Route: 042
     Dates: start: 20080407, end: 20081002
  4. AVASTIN [Suspect]
     Route: 042
     Dates: start: 20080407, end: 20081002
  5. ARIMIDEX [Concomitant]
     Route: 048
     Dates: start: 20081021, end: 20081116
  6. ARIMIDEX [Concomitant]
     Route: 048
     Dates: start: 20081021, end: 20081116
  7. GONADOTROPHIN RELEASING HORMONE ANALOGUES [Concomitant]
     Route: 030
     Dates: start: 20081021
  8. GONADOTROPHIN RELEASING HORMONE ANALOGUES [Concomitant]
     Route: 030
     Dates: start: 20081021
  9. LYTOS [Concomitant]
     Indication: DRUG USE FOR UNKNOWN INDICATION
     Route: 048
     Dates: start: 20080819, end: 20081116
  10. MOPRAL [Concomitant]
     Indication: DRUG USE FOR UNKNOWN INDICATION
     Route: 048
     Dates: end: 20081116
  11. LEXOMIL [Concomitant]
     Indication: DRUG USE FOR UNKNOWN INDICATION
     Route: 048
     Dates: start: 20080407

REACTIONS (1)
  - CARDIOGENIC SHOCK [None]
